FAERS Safety Report 5527576-5 (Version None)
Quarter: 2007Q4

REPORT INFORMATION
  Report Type: 
  Country: None (occurrence: None)
  Receive Date: 20071128
  Receipt Date: 20071126
  Transmission Date: 20080405
  Serious: Yes (Death, Hospitalization)
  Sender: FDA-Public Use
  Company Number: BR-BRISTOL-MYERS SQUIBB COMPANY-13995584

PATIENT

DRUGS (2)
  1. COUMADIN [Suspect]
     Route: 048
  2. WARFARIN SODIUM [Suspect]

REACTIONS (1)
  - EMBOLISM [None]
